FAERS Safety Report 9788475 (Version 1)
Quarter: 2013Q4

REPORT INFORMATION
  Report Type: Spontaneous
  Country: US (occurrence: US)
  Receive Date: 20131230
  Receipt Date: 20131230
  Transmission Date: 20140711
  Serious: Yes (Hospitalization)
  Sender: FDA-Public Use
  Company Number: US-BAYER-2013-155181

PATIENT
  Age: 20 Year
  Sex: Female

DRUGS (3)
  1. CIPROFLOXACIN [Suspect]
     Indication: OSTEOMYELITIS
  2. VANCOMYCIN [Suspect]
     Indication: OSTEOMYELITIS
  3. ERTAPENEM [Concomitant]
     Indication: OSTEOMYELITIS

REACTIONS (1)
  - Tubulointerstitial nephritis [Recovering/Resolving]
